FAERS Safety Report 13454964 (Version 1)
Quarter: 2017Q2

REPORT INFORMATION
  Report Type: Spontaneous
  Country: US (occurrence: US)
  Receive Date: 20170418
  Receipt Date: 20170418
  Transmission Date: 20170830
  Serious: No
  Sender: FDA-Public Use
  Company Number: US-BRISTOL-MYERS SQUIBB COMPANY-BMS-2017-027490

PATIENT
  Age: 62 Year
  Sex: Female

DRUGS (2)
  1. COUMADINE [Suspect]
     Active Substance: WARFARIN SODIUM
     Indication: CAROTID ARTERY DISSECTION
     Dosage: UNK
     Route: 048
     Dates: start: 2000
  2. COUMADINE [Suspect]
     Active Substance: WARFARIN SODIUM
     Indication: VASCULAR PSEUDOANEURYSM
     Route: 065

REACTIONS (3)
  - Contusion [Unknown]
  - Product use in unapproved indication [Unknown]
  - International normalised ratio fluctuation [Unknown]
